FAERS Safety Report 9941759 (Version 1)
Quarter: 2014Q1

REPORT INFORMATION
  Report Type: Spontaneous
  Country: PR (occurrence: PR)
  Receive Date: 20140303
  Receipt Date: 20140303
  Transmission Date: 20141002
  Serious: No
  Sender: FDA-Public Use
  Company Number: PR-ABBVIE-13P-131-1040781-00

PATIENT
  Sex: Male
  Weight: 81.72 kg

DRUGS (3)
  1. HUMIRA [Suspect]
     Indication: PSORIASIS
     Route: 058
  2. CLOBEX [Concomitant]
     Indication: PSORIASIS
     Dosage: SPRAY FRIDAY-SUNDAYS
     Route: 061
  3. VECTICAL [Concomitant]
     Indication: PSORIASIS
     Dosage: MONDAYS-THURSDAYS
     Route: 061

REACTIONS (2)
  - Contusion [Recovering/Resolving]
  - Muscle spasms [Not Recovered/Not Resolved]
